FAERS Safety Report 11735467 (Version 1)
Quarter: 2015Q4

REPORT INFORMATION
  Report Type: Spontaneous
  Country: US (occurrence: US)
  Receive Date: 20151110
  Receipt Date: 20151110
  Transmission Date: 20160304
  Serious: No
  Sender: FDA-Public Use
  Company Number: US-ELI_LILLY_AND_COMPANY-US201205008434

PATIENT
  Age: 70 Year
  Sex: Female

DRUGS (3)
  1. CALCIUM W/VITAMIN D NOS [Concomitant]
     Active Substance: CALCIUM\VITAMIN D
     Dosage: 4 DF, UNK
  2. FORTEO [Suspect]
     Active Substance: TERIPARATIDE
     Indication: OSTEOPOROSIS
     Dosage: 20 UG, QD
     Dates: start: 20120426
  3. FORTEO [Suspect]
     Active Substance: TERIPARATIDE
     Dosage: 20 UG, QD

REACTIONS (12)
  - Hernia [Unknown]
  - Gait disturbance [Unknown]
  - Abdominal distension [Unknown]
  - Blood test abnormal [Unknown]
  - Myalgia [Unknown]
  - Muscle tightness [Unknown]
  - Kidney infection [Unknown]
  - Fungal infection [Unknown]
  - Headache [Recovered/Resolved]
  - Gastrointestinal motility disorder [Unknown]
  - Pain [Unknown]
  - Constipation [Unknown]

NARRATIVE: CASE EVENT DATE: 20120531
